FAERS Safety Report 9101102 (Version 2)
Quarter: 2013Q1

REPORT INFORMATION
  Report Type: Spontaneous
  Country: US (occurrence: US)
  Receive Date: 20130218
  Receipt Date: 20130314
  Transmission Date: 20140127
  Serious: Yes (Hospitalization, Other)
  Sender: FDA-Public Use
  Company Number: US-BAXTER-2013BAX005615

PATIENT
  Sex: Female

DRUGS (2)
  1. DIANEAL LOW CALCIUM [Suspect]
     Indication: PERITONEAL DIALYSIS
     Route: 033
  2. DIANEAL LOW CALCIUM [Suspect]
     Indication: PERITONEAL DIALYSIS

REACTIONS (9)
  - Fall [Recovering/Resolving]
  - Hernia [Recovered/Resolved]
  - Intestinal obstruction [Recovered/Resolved]
  - Chest discomfort [Not Recovered/Not Resolved]
  - Atrial fibrillation [Unknown]
  - Condition aggravated [Recovered/Resolved]
  - Gastrointestinal infection [Recovered/Resolved]
  - Hypertension [Not Recovered/Not Resolved]
  - Fluid retention [Recovered/Resolved]
